FAERS Safety Report 9567835 (Version 1)
Quarter: 2013Q3

REPORT INFORMATION
  Report Type: Spontaneous
  Country: US (occurrence: US)
  Receive Date: 20130930
  Receipt Date: 20130930
  Transmission Date: 20140515
  Serious: Yes (Other)
  Sender: FDA-Public Use
  Company Number: US-AMGEN-USASP2013023580

PATIENT
  Age: 56 Year
  Sex: Male
  Weight: 88.44 kg

DRUGS (2)
  1. ENBREL [Suspect]
     Indication: RHEUMATOID ARTHRITIS
     Dosage: UNK
     Route: 058
     Dates: start: 201109, end: 201207
  2. AMLODIPINE [Concomitant]
     Dosage: UNK

REACTIONS (2)
  - Lupus-like syndrome [Unknown]
  - Laboratory test abnormal [Unknown]
